FAERS Safety Report 4359710-7 (Version None)
Quarter: 2004Q2

REPORT INFORMATION
  Report Type: 
  Country: None (occurrence: None)
  Receive Date: 20040518
  Receipt Date: 20030910
  Transmission Date: 20050107
  Serious: Yes (Other)
  Sender: FDA-Public Use
  Company Number: PHEH2003US08324

PATIENT
  Age: 77 Year
  Sex: Male

DRUGS (11)
  1. AREDIA [Suspect]
     Indication: MULTIPLE MYELOMA
     Dosage: UNK, QMO
     Dates: start: 20000101, end: 20020101
  2. ZOMETA [Suspect]
     Indication: MULTIPLE MYELOMA
     Dosage: 4MG/QMO
     Dates: start: 20020101, end: 20030101
  3. MOTRIN [Concomitant]
  4. CIPROFLOXACIN [Concomitant]
  5. ASPIRIN [Concomitant]
  6. EPOGEN [Concomitant]
  7. PANTOPRAZOLE [Concomitant]
  8. PREDNISONE [Concomitant]
  9. DEXAMETHASONE [Concomitant]
  10. DOXIL [Concomitant]
  11. VINCRISTINE [Concomitant]

REACTIONS (15)
  - ACTINOMYCOSIS [None]
  - ALVEOLOPLASTY [None]
  - AORTIC VALVE REPLACEMENT [None]
  - IMPAIRED HEALING [None]
  - JAW OPERATION [None]
  - MULTIPLE MYELOMA [None]
  - NECROSIS [None]
  - OSTECTOMY [None]
  - OSTEOMYELITIS [None]
  - OSTEONECROSIS [None]
  - OSTEOSCLEROSIS [None]
  - SEQUESTRECTOMY [None]
  - SKIN ULCER [None]
  - TOOTH EXTRACTION [None]
  - WOUND DEBRIDEMENT [None]
